FAERS Safety Report 19108386 (Version 1)
Quarter: 2021Q2

REPORT INFORMATION
  Report Type: Spontaneous
  Country: US (occurrence: US)
  Receive Date: 20210408
  Receipt Date: 20210408
  Transmission Date: 20210717
  Serious: Yes (Other)
  Sender: FDA-Public Use
  Company Number: None

PATIENT
  Age: 63 Year
  Sex: Male
  Weight: 73.8 kg

DRUGS (18)
  1. TEMOVATE [Concomitant]
     Active Substance: CLOBETASOL PROPIONATE
  2. DESONIDE. [Concomitant]
     Active Substance: DESONIDE
  3. COPIKTRA [Suspect]
     Active Substance: DUVELISIB
     Indication: CUTANEOUS T-CELL LYMPHOMA
     Route: 048
     Dates: start: 20210225, end: 20210325
  4. ALDARA [Concomitant]
     Active Substance: IMIQUIMOD
  5. LORAZEPAM. [Concomitant]
     Active Substance: LORAZEPAM
  6. GABAPENTIN. [Concomitant]
     Active Substance: GABAPENTIN
  7. PROCHLORPERAZINE. [Concomitant]
     Active Substance: PROCHLORPERAZINE
  8. KETOCONAZOLE. [Concomitant]
     Active Substance: KETOCONAZOLE
  9. ONDANSETRON [Concomitant]
     Active Substance: ONDANSETRON
  10. COENZYME Q?10 [Concomitant]
  11. ELIQUIS [Concomitant]
     Active Substance: APIXABAN
  12. HYDROXYZINE [Concomitant]
     Active Substance: HYDROXYZINE HYDROCHLORIDE
  13. MULTIVITAMIN [Concomitant]
     Active Substance: VITAMINS
  14. BACTRIM DS [Concomitant]
     Active Substance: SULFAMETHOXAZOLE\TRIMETHOPRIM
  15. TERBINAFINE. [Concomitant]
     Active Substance: TERBINAFINE
  16. CLOBETASOL [Concomitant]
     Active Substance: CLOBETASOL
  17. MUPIROCIN. [Concomitant]
     Active Substance: MUPIROCIN
  18. TRIAMCINOLONE [Concomitant]
     Active Substance: TRIAMCINOLONE

REACTIONS (5)
  - Fatigue [None]
  - Asthenia [None]
  - Oedema [None]
  - Pyrexia [None]
  - Therapy interrupted [None]

NARRATIVE: CASE EVENT DATE: 20210408
